FAERS Safety Report 12242568 (Version 1)
Quarter: 2016Q2

REPORT INFORMATION
  Report Type: Spontaneous
  Country: US (occurrence: US)
  Receive Date: 20160406
  Receipt Date: 20160406
  Transmission Date: 20160815
  Serious: No
  Sender: FDA-Public Use
  Company Number: US-BAYER-2016-059416

PATIENT
  Age: 19 Month
  Sex: Female

DRUGS (1)
  1. MIRALAX [Suspect]
     Active Substance: POLYETHYLENE GLYCOL 3350
     Indication: CONSTIPATION
     Dosage: 0.5 DF, QD MORE THAN 7 DAYS
     Route: 048

REACTIONS (3)
  - Circumstance or information capable of leading to medication error [None]
  - Drug administered to patient of inappropriate age [None]
  - Product use issue [None]
